FAERS Safety Report 5337865-5 (Version None)
Quarter: 2007Q2

REPORT INFORMATION
  Report Type: 
  Country: None (occurrence: None)
  Receive Date: 20070308
  Receipt Date: 20061220
  Transmission Date: 20071010
  Serious: No
  Sender: FDA-Public Use
  Company Number: 2006-BP-12544BP

PATIENT
  Age: 78 Year
  Sex: Male
  Weight: 109.7 kg

DRUGS (2)
  1. SPIRIVA [Suspect]
     Indication: CHRONIC OBSTRUCTIVE PULMONARY DISEASE
     Dosage: 18 MCG; IH
     Route: 055
     Dates: end: 20060412
  2. SPIRIVA [Suspect]
     Indication: EMPHYSEMA
     Dosage: 18 MCG; IH
     Route: 055
     Dates: end: 20060412

REACTIONS (3)
  - CANDIDIASIS [None]
  - FUNGAL INFECTION [None]
  - VOCAL CORD DISORDER [None]
